FAERS Safety Report 6327432-9 (Version None)
Quarter: 2009Q3

REPORT INFORMATION
  Report Type: 
  Country: None (occurrence: None)
  Receive Date: 20090818
  Receipt Date: 20090709
  Transmission Date: 20100115
  Serious: No
  Sender: FDA-Public Use
  Company Number: WAES 0907USA01295

PATIENT
  Age: 65 Year
  Sex: Male

DRUGS (4)
  1. JANUVIA [Suspect]
     Indication: DIABETES MELLITUS
     Dosage: PO
     Route: 048
     Dates: start: 20080801
  2. METFORMIN HCL [Concomitant]
  3. PREDNISONE TAB [Concomitant]
  4. RANITIDINE HYDROCHLORIDE [Concomitant]

REACTIONS (2)
  - COUGH [None]
  - THROAT IRRITATION [None]
